FAERS Safety Report 8551410-2 (Version None)
Quarter: 2012Q3

REPORT INFORMATION
  Report Type: 
  Country: None (occurrence: None)
  Receive Date: 20120730
  Receipt Date: 20120229
  Transmission Date: 20120928
  Serious: No
  Sender: FDA-Public Use
  Company Number: US-ALLERGAN-1202875US

PATIENT
  Age: 68 Year
  Sex: Female

DRUGS (5)
  1. LATISSE [Suspect]
     Indication: GROWTH OF EYELASHES
     Dosage: 2 GTT, QHS
     Route: 061
     Dates: start: 20110901, end: 20120201
  2. PRESERVATIVE FREE SALINE DROPS [Concomitant]
     Indication: EYE LUBRICATION THERAPY
     Dosage: UNK
  3. SINGULAIR [Concomitant]
     Indication: SEASONAL ALLERGY
     Dosage: 10 MG, UNK
     Route: 048
  4. SINGULAIR [Concomitant]
     Indication: ASTHMA
  5. LIPITOR [Concomitant]
     Indication: BLOOD CHOLESTEROL INCREASED
     Dosage: 10 MG, QD
     Route: 048

REACTIONS (2)
  - ERYTHEMA OF EYELID [None]
  - SKIN HYPERPIGMENTATION [None]
